FAERS Safety Report 6138181-4 (Version None)
Quarter: 2009Q1

REPORT INFORMATION
  Report Type: 
  Country: None (occurrence: None)
  Receive Date: 20090331
  Receipt Date: 20090324
  Transmission Date: 20090719
  Serious: Yes (Hospitalization)
  Sender: FDA-Public Use
  Company Number: JP-ASTRAZENECA-2009AP02036

PATIENT
  Age: 70 Year
  Sex: Male

DRUGS (3)
  1. XYLOCAINE [Suspect]
     Indication: EPIDURAL TEST DOSE
     Dosage: 1.5 % 120 ML
     Route: 008
     Dates: start: 20090122, end: 20090123
  2. ANAPEINE INJECTION [Suspect]
     Indication: EPIDURAL ANAESTHESIA
     Dosage: 0.7 % X 6 ML, AND 0.35 % X 4 ML ADDITIONALLY
     Route: 008
     Dates: start: 20090122, end: 20090122
  3. ANPEC [Concomitant]
     Route: 008
     Dates: start: 20090122, end: 20090122

REACTIONS (1)
  - MONOPLEGIA [None]
